FAERS Safety Report 4629329-9 (Version None)
Quarter: 2005Q2

REPORT INFORMATION
  Report Type: 
  Country: None (occurrence: None)
  Receive Date: 20050405
  Receipt Date: 20050321
  Transmission Date: 20051028
  Serious: Yes (Death)
  Sender: FDA-Public Use
  Company Number: B0375847A

PATIENT
  Sex: 0

DRUGS (2)
  1. ALKERAN [Suspect]
     Dosage: 4MG/M2 CYCLIC/ORAL
     Route: 048
  2. PREDNISONE(FORMULATION UNKNOWN) [Suspect]
     Dosage: 40 MG/M2/ MONTHLY

REACTIONS (1)
  - MYOCARDIAL INFARCTION [None]
